FAERS Safety Report 10521477 (Version 1)
Quarter: 2014Q4

REPORT INFORMATION
  Report Type: Report from Study
  Country: US (occurrence: US)
  Receive Date: 20141016
  Receipt Date: 20141016
  Transmission Date: 20150528
  Serious: No
  Sender: FDA-Public Use
  Company Number: US-009507513-2006-07-2004

PATIENT
  Age: 18 Year
  Sex: Female

DRUGS (4)
  1. GONGJINHYANG SEOL WHITENING INTENSIVE [Concomitant]
     Active Substance: DIACETYL BENZOYL LATHYROL
     Indication: PREGNANCY
     Dosage: GESTATIONAL WEEK TREATMENT BEGAN 7
     Dates: start: 20060630
  2. RIBAVIRIN. [Suspect]
     Active Substance: RIBAVIRIN
     Indication: PRODUCT USED FOR UNKNOWN INDICATION
     Dosage: 1000 MG QD
     Route: 048
     Dates: start: 20060217, end: 20060505
  3. MINERALS (UNSPECIFIED) (+) VITAMINS (UNSPECIFIED) [Concomitant]
     Indication: PREGNANCY
     Dosage: GESTATIONAL WEEK TREATMENT BEGAN 7
     Dates: start: 20060630
  4. PEGINTRON [Suspect]
     Active Substance: PEGINTERFERON ALFA-2B
     Indication: PRODUCT USED FOR UNKNOWN INDICATION
     Dosage: UNK
     Route: 058
     Dates: start: 20060217, end: 20060505

REACTIONS (2)
  - Papilloma viral infection [Unknown]
  - Exposure via body fluid [Recovered/Resolved with Sequelae]
